FAERS Safety Report 13570023 (Version 1)
Quarter: 2017Q2

REPORT INFORMATION
  Report Type: Spontaneous
  Country: CN (occurrence: CN)
  Receive Date: 20170522
  Receipt Date: 20170522
  Transmission Date: 20170830
  Serious: Yes (Hospitalization, Other)
  Sender: FDA-Public Use
  Company Number: CN-GILEAD-2017-0273790

PATIENT
  Age: 54 Year
  Sex: Male

DRUGS (3)
  1. HEPSERA [Suspect]
     Active Substance: ADEFOVIR DIPIVOXIL
     Indication: HEPATITIS CHRONIC ACTIVE
     Dosage: 10 MG, QD
     Route: 048
     Dates: start: 20160326, end: 20170225
  2. ENTECAVIR. [Suspect]
     Active Substance: ENTECAVIR
     Indication: HEPATITIS CHRONIC ACTIVE
     Dosage: 1 MG, UNK
     Route: 048
     Dates: start: 20160326
  3. TELBIVUDINE [Concomitant]
     Active Substance: TELBIVUDINE
     Dosage: 600 MG, UNK

REACTIONS (3)
  - Condition aggravated [Unknown]
  - Blood urea increased [Recovered/Resolved]
  - Renal impairment [Recovered/Resolved]

NARRATIVE: CASE EVENT DATE: 20170211
